FAERS Safety Report 5131494-4 (Version None)
Quarter: 2006Q4

REPORT INFORMATION
  Report Type: 
  Country: None (occurrence: None)
  Receive Date: 20061020
  Receipt Date: 20060623
  Transmission Date: 20070319
  Serious: Yes (Other)
  Sender: FDA-Public Use
  Company Number: US-AVENTIS-200615996US

PATIENT
  Sex: Male
  Weight: 91 kg

DRUGS (4)
  1. ALLEGRA [Suspect]
     Dosage: DOSE: UNK
     Route: 048
  2. ALCOHOL [Suspect]
     Dosage: DOSE: ^A LITTLE^ (DRINKING)
     Route: 048
  3. VITAMINS [Concomitant]
     Dosage: DOSE: UNK
  4. TPN [Concomitant]
     Dosage: DOSE: UNK

REACTIONS (10)
  - BALANCE DISORDER [None]
  - BREATH ALCOHOL TEST POSITIVE [None]
  - COORDINATION ABNORMAL [None]
  - DYSARTHRIA [None]
  - IMPAIRED DRIVING ABILITY [None]
  - NEUROLOGICAL EXAMINATION ABNORMAL [None]
  - NYSTAGMUS [None]
  - OCULAR HYPERAEMIA [None]
  - ROAD TRAFFIC ACCIDENT [None]
  - TACHYCARDIA [None]
